FAERS Safety Report 20494362 (Version 1)
Quarter: 2022Q1

REPORT INFORMATION
  Report Type: Spontaneous
  Country: AU (occurrence: AU)
  Receive Date: 20220221
  Receipt Date: 20220221
  Transmission Date: 20220423
  Serious: Yes (Other)
  Sender: FDA-Public Use
  Company Number: AU-NOVARTISPH-NVSC2022AU038670

PATIENT
  Sex: Female

DRUGS (7)
  1. ESOMEPRAZOLE [Suspect]
     Active Substance: ESOMEPRAZOLE
     Indication: Product used for unknown indication
     Dosage: UNK
     Route: 065
  2. PERINDOPRIL [Suspect]
     Active Substance: PERINDOPRIL
     Indication: Product used for unknown indication
     Dosage: UNK
     Route: 065
  3. AMLODIPINE [Suspect]
     Active Substance: AMLODIPINE BESYLATE
     Indication: Product used for unknown indication
     Dosage: UNK
     Route: 065
  4. HUMIRA [Suspect]
     Active Substance: ADALIMUMAB
     Indication: Hidradenitis
     Dosage: UNK
     Route: 065
  5. HUMIRA [Suspect]
     Active Substance: ADALIMUMAB
     Indication: Groin abscess
  6. STELARA [Suspect]
     Active Substance: USTEKINUMAB
     Indication: Hidradenitis
     Dosage: (3 DOSES 6 WEEKLY)
     Route: 065
  7. STELARA [Suspect]
     Active Substance: USTEKINUMAB
     Indication: Groin abscess

REACTIONS (6)
  - Hyperthyroidism [Recovering/Resolving]
  - Gastrooesophageal reflux disease [Recovering/Resolving]
  - Polycystic ovaries [Recovering/Resolving]
  - Arthralgia [Recovered/Resolved]
  - Drug ineffective [Unknown]
  - Treatment failure [Unknown]
